FAERS Safety Report 14392611 (Version 1)
Quarter: 2018Q1

REPORT INFORMATION
  Report Type: Spontaneous
  Country: US (occurrence: US)
  Receive Date: 20180112
  Receipt Date: 20180112
  Transmission Date: 20180509
  Serious: No
  Sender: FDA-Public Use
  Company Number: None

PATIENT
  Age: 33 Year
  Sex: Female
  Weight: 112.5 kg

DRUGS (5)
  1. PRENATALS [Concomitant]
  2. TYLENOL [Concomitant]
     Active Substance: ACETAMINOPHEN
  3. SIMILAC [Concomitant]
     Active Substance: DEXTROSE\WATER
  4. LABETALOL 200MGS [Suspect]
     Active Substance: LABETALOL HYDROCHLORIDE
     Indication: HYPERTENSION
     Dosage: ?          QUANTITY:60 TABLET(S);?
     Route: 048
     Dates: start: 20180102
  5. LABETALOL 200MGS [Suspect]
     Active Substance: LABETALOL HYDROCHLORIDE
     Indication: PREGNANCY
     Dosage: ?          QUANTITY:60 TABLET(S);?
     Route: 048
     Dates: start: 20180102

REACTIONS (4)
  - Exposure during pregnancy [None]
  - Hepatic enzyme increased [None]
  - Burning sensation [None]
  - Nipple pain [None]

NARRATIVE: CASE EVENT DATE: 20180102
